FAERS Safety Report 15244772 (Version 7)
Quarter: 2023Q2

REPORT INFORMATION
  Report Type: Report from Study
  Country: US (occurrence: US)
  Receive Date: 20180806
  Receipt Date: 20230605
  Transmission Date: 20230722
  Serious: Yes (Hospitalization)
  Sender: FDA-Public Use
  Company Number: US-SHIRE-US201829848

PATIENT
  Age: 13 Year
  Sex: Male
  Weight: 71.655 kg

DRUGS (6)
  1. IDURSULFASE [Suspect]
     Active Substance: IDURSULFASE
     Indication: Mucopolysaccharidosis II
     Dosage: 36 MILLIGRAM, 1/WEEK
     Route: 042
     Dates: start: 201410
  2. IDURSULFASE [Suspect]
     Active Substance: IDURSULFASE
     Indication: Mucopolysaccharidosis
     Dosage: 36 MILLIGRAM, 1/WEEK
     Route: 042
     Dates: start: 2014
  3. IDURSULFASE [Suspect]
     Active Substance: IDURSULFASE
     Dosage: 36 MILLIGRAM, 1/WEEK
     Route: 042
  4. IDURSULFASE [Suspect]
     Active Substance: IDURSULFASE
     Dosage: 30 MILLIGRAM, 1/WEEK
     Route: 042
  5. IDURSULFASE [Suspect]
     Active Substance: IDURSULFASE
     Dosage: 30 MILLIGRAM, 1/WEEK
     Route: 042
     Dates: start: 2014
  6. IDURSULFASE [Suspect]
     Active Substance: IDURSULFASE
     Dosage: 30 MILLIGRAM, 1/WEEK
     Route: 042
     Dates: start: 201411

REACTIONS (7)
  - Back pain [Unknown]
  - Pain in extremity [Unknown]
  - Catheter site swelling [Unknown]
  - Device issue [Unknown]
  - Device use issue [Unknown]
  - Device breakage [Unknown]
  - Product dose omission issue [Unknown]

NARRATIVE: CASE EVENT DATE: 20180730
